FAERS Safety Report 7810351-6 (Version None)
Quarter: 2011Q4

REPORT INFORMATION
  Report Type: 
  Country: None (occurrence: None)
  Receive Date: 20111012
  Receipt Date: 20111004
  Transmission Date: 20120403
  Serious: Yes (Hospitalization, Other)
  Sender: FDA-Public Use
  Company Number: PHEH2009US16949

PATIENT
  Sex: Female

DRUGS (16)
  1. ZOFRAN [Concomitant]
  2. LORTAB [Concomitant]
  3. VANCOMYCIN [Concomitant]
  4. NEURONTIN [Concomitant]
     Dosage: 300 MG, BID
     Route: 048
  5. PREMARIN [Concomitant]
  6. DEMEROL [Concomitant]
  7. PHENERGAN HCL [Concomitant]
  8. DYAZIDE [Concomitant]
  9. AREDIA [Suspect]
     Indication: BREAST CANCER
     Route: 042
     Dates: start: 20030101, end: 20060101
  10. ULTRAM [Concomitant]
  11. CALCIUM CARBONATE [Concomitant]
  12. FEMARA [Concomitant]
  13. TYLENOL-500 [Concomitant]
  14. ARIMIDEX [Concomitant]
  15. PRILOSEC [Concomitant]
  16. DILAUDID [Concomitant]

REACTIONS (32)
  - INJURY [None]
  - HYPERTENSION [None]
  - ABDOMINAL PAIN [None]
  - PAIN [None]
  - ANXIETY [None]
  - CHEST PAIN [None]
  - RHEUMATOID ARTHRITIS [None]
  - OSTEOPOROSIS [None]
  - OSTEOPENIA [None]
  - HYPERTONIC BLADDER [None]
  - ARTHRALGIA [None]
  - LEUKOCYTOSIS [None]
  - OSTEONECROSIS OF JAW [None]
  - BRONCHITIS [None]
  - LIPOMA [None]
  - MASS [None]
  - EXPOSED BONE IN JAW [None]
  - PRIMARY SEQUESTRUM [None]
  - RECTAL HAEMORRHAGE [None]
  - DECREASED INTEREST [None]
  - PULMONARY EMBOLISM [None]
  - CHRONIC OBSTRUCTIVE PULMONARY DISEASE [None]
  - DIVERTICULITIS [None]
  - OSTEOMYELITIS [None]
  - PARAESTHESIA [None]
  - PERIODONTITIS [None]
  - STRESS FRACTURE [None]
  - FIBROMYALGIA [None]
  - MENINGITIS [None]
  - IMPAIRED HEALING [None]
  - SWELLING [None]
  - HAEMORRHOIDS [None]
